FAERS Safety Report 18199180 (Version 2)
Quarter: 2023Q1

REPORT INFORMATION
  Report Type: Spontaneous
  Country: US (occurrence: US)
  Receive Date: 20200826
  Receipt Date: 20230321
  Transmission Date: 20230418
  Serious: Yes (Other)
  Sender: FDA-Public Use
  Company Number: US-GILEAD-2020-0491403

PATIENT
  Age: 59 Year
  Sex: Female
  Weight: 56.689 kg

DRUGS (12)
  1. TRUVADA [Suspect]
     Active Substance: EMTRICITABINE\TENOFOVIR DISOPROXIL FUMARATE
     Indication: HIV infection
     Dosage: UNK
     Route: 065
     Dates: start: 2004, end: 20170929
  2. EPIVIR [Concomitant]
     Active Substance: LAMIVUDINE
  3. TRIUMEQ [Concomitant]
     Active Substance: ABACAVIR SULFATE\DOLUTEGRAVIR SODIUM\LAMIVUDINE
  4. LOSARTAN [Concomitant]
     Active Substance: LOSARTAN
  5. OXYBUTYNIN [Concomitant]
     Active Substance: OXYBUTYNIN
  6. CYPROHEPTADINE [Concomitant]
     Active Substance: CYPROHEPTADINE
  7. RANITIDINE [Concomitant]
     Active Substance: RANITIDINE
  8. TOLTERODINE [Concomitant]
     Active Substance: TOLTERODINE
  9. NIFEDIPINE [Concomitant]
     Active Substance: NIFEDIPINE
  10. DITROPAN [Concomitant]
     Active Substance: OXYBUTYNIN CHLORIDE
  11. DETROL [Concomitant]
     Active Substance: TOLTERODINE TARTRATE
  12. ATENOLOL [Concomitant]
     Active Substance: ATENOLOL

REACTIONS (7)
  - Foot fracture [Not Recovered/Not Resolved]
  - Chronic kidney disease [Not Recovered/Not Resolved]
  - Loss of personal independence in daily activities [Not Recovered/Not Resolved]
  - Emotional distress [Not Recovered/Not Resolved]
  - Osteopenia [Not Recovered/Not Resolved]
  - Depression [Not Recovered/Not Resolved]
  - Pain [Not Recovered/Not Resolved]

NARRATIVE: CASE EVENT DATE: 20140506
